FAERS Safety Report 24424810 (Version 3)
Quarter: 2024Q4

REPORT INFORMATION
  Report Type: Spontaneous
  Country: GB (occurrence: GB)
  Receive Date: 20241010
  Receipt Date: 20241230
  Transmission Date: 20250115
  Serious: Yes (Hospitalization)
  Sender: MYLAN
  Company Number: GB-MYLANLABS-2024M1091602

PATIENT
  Sex: Male

DRUGS (3)
  1. CLOZARIL [Suspect]
     Active Substance: CLOZAPINE
     Indication: Schizophrenia
     Dosage: UNK
     Route: 048
     Dates: start: 20230208
  2. CLOZARIL [Suspect]
     Active Substance: CLOZAPINE
     Dosage: 950 MILLIGRAM, QD (HISTORICAL DOSE)
     Route: 048
  3. CLOZARIL [Suspect]
     Active Substance: CLOZAPINE
     Dosage: 200 MILLIGRAM, BID (400 MG/DAY CURRENT DOSE)
     Route: 048

REACTIONS (1)
  - Hospitalisation [Recovered/Resolved]
